FAERS Safety Report 7968466-8 (Version None)
Quarter: 2011Q4

REPORT INFORMATION
  Report Type: 
  Country: None (occurrence: None)
  Receive Date: 20111209
  Receipt Date: 20111130
  Transmission Date: 20120403
  Serious: Yes (Other)
  Sender: FDA-Public Use
  Company Number: IE-SANOFI-AVENTIS-2011SA078522

PATIENT
  Age: 75 Year
  Sex: Male

DRUGS (7)
  1. WARFARIN SODIUM [Concomitant]
     Route: 065
  2. BISOPROLOL FUMARATE [Concomitant]
     Indication: ATRIAL FIBRILLATION
     Route: 065
  3. LIPITOR [Concomitant]
     Route: 065
  4. MULTAQ [Suspect]
     Route: 048
     Dates: start: 20110802
  5. NU-SEALS [Concomitant]
     Indication: ATRIAL FIBRILLATION
     Route: 065
  6. ALLOPURINOL [Concomitant]
     Indication: GOUT
     Route: 065
  7. AMLODIPINE/VALSARTAN [Concomitant]
     Indication: HYPERTENSION
     Dosage: 5 MG/160 MG/25 MG
     Route: 065

REACTIONS (2)
  - DYSPNOEA EXERTIONAL [None]
  - FATIGUE [None]
